FAERS Safety Report 7792837-6 (Version None)
Quarter: 2011Q4

REPORT INFORMATION
  Report Type: 
  Country: None (occurrence: None)
  Receive Date: 20111003
  Receipt Date: 20110930
  Transmission Date: 20120403
  Serious: Yes (Hospitalization)
  Sender: FDA-Public Use
  Company Number: US-GLAXOSMITHKLINE-B0696767A

PATIENT
  Age: 52 Year
  Sex: Male
  Weight: 155 kg

DRUGS (5)
  1. AVANDIA [Suspect]
     Indication: DIABETES MELLITUS
     Dosage: 4MG TWICE PER DAY
     Route: 048
     Dates: end: 20070701
  2. GLUCOPHAGE [Concomitant]
  3. COZAAR [Concomitant]
  4. AMARYL [Concomitant]
  5. VYTORIN [Concomitant]

REACTIONS (7)
  - ATRIOVENTRICULAR BLOCK [None]
  - CARDIAC DISORDER [None]
  - HYPOTONIA [None]
  - LOSS OF LIBIDO [None]
  - ERECTILE DYSFUNCTION [None]
  - ANGINA UNSTABLE [None]
  - WEIGHT INCREASED [None]
